FAERS Safety Report 22289640 (Version 1)
Quarter: 2023Q2

REPORT INFORMATION
  Report Type: Spontaneous
  Country: US (occurrence: None)
  Receive Date: 20230504
  Receipt Date: 20230504
  Transmission Date: 20230721
  Serious: Yes (Hospitalization)
  Sender: FDA-Public Use
  Company Number: None

PATIENT
  Age: 47 Year
  Sex: Male
  Weight: 152.1 kg

DRUGS (2)
  1. INFLECTRA [Suspect]
     Active Substance: INFLIXIMAB-DYYB
     Indication: Hidradenitis
     Dosage: FREQUENCY : DAILY;?
     Route: 042
  2. INFLECTRA [Suspect]
     Active Substance: INFLIXIMAB-DYYB
     Indication: Hidradenitis
     Dosage: FREQUENCY : DAILY;?
     Route: 042

REACTIONS (11)
  - Malaise [None]
  - Feeling hot [None]
  - Nausea [None]
  - Infusion related reaction [None]
  - Blood pressure decreased [None]
  - Pruritus [None]
  - Cough [None]
  - Swelling face [None]
  - Wheezing [None]
  - Lip swelling [None]
  - Swollen tongue [None]

NARRATIVE: CASE EVENT DATE: 20230504
